FAERS Safety Report 14423497 (Version 1)
Quarter: 2018Q1

REPORT INFORMATION
  Report Type: Spontaneous
  Country: US (occurrence: US)
  Receive Date: 20180123
  Receipt Date: 20180123
  Transmission Date: 20180509
  Serious: No
  Sender: FDA-Public Use
  Company Number: US-TEVA-776269ACC

PATIENT
  Age: 9 Year
  Sex: Male
  Weight: 33.02 kg

DRUGS (2)
  1. PERMETHRIN. [Suspect]
     Active Substance: PERMETHRIN
     Indication: ARTHROPOD BITE
     Dosage: FOR 2 WEEKS
     Route: 061
     Dates: start: 20170510
  2. PERMETHRIN. [Suspect]
     Active Substance: PERMETHRIN
     Indication: ECZEMA

REACTIONS (3)
  - Pain [Recovered/Resolved]
  - Erythema [Recovering/Resolving]
  - Burning sensation [Recovered/Resolved]

NARRATIVE: CASE EVENT DATE: 20170510
